FAERS Safety Report 6468664-9 (Version None)
Quarter: 2009Q4

REPORT INFORMATION
  Report Type: 
  Country: None (occurrence: None)
  Receive Date: 20091203
  Receipt Date: 20091123
  Transmission Date: 20100525
  Serious: Yes (Other)
  Sender: FDA-Public Use
  Company Number: NO-ROCHE-670437

PATIENT
  Sex: Male

DRUGS (1)
  1. TAMIFLU [Suspect]
     Route: 048
     Dates: start: 20091110, end: 20091111

REACTIONS (4)
  - CONDITION AGGRAVATED [None]
  - HALLUCINATION [None]
  - MUSCLE SPASMS [None]
  - SPEECH DISORDER [None]
